FAERS Safety Report 12188878 (Version 1)
Quarter: 2016Q1

REPORT INFORMATION
  Report Type: Spontaneous
  Country: US (occurrence: US)
  Receive Date: 20160317
  Receipt Date: 20160317
  Transmission Date: 20160526
  Serious: No
  Sender: FDA-Public Use
  Company Number: US-PERRIGO-15US003480

PATIENT
  Sex: Male

DRUGS (1)
  1. TESTOSTERONE CYPIONATE. [Suspect]
     Active Substance: TESTOSTERONE CYPIONATE
     Indication: PRODUCT USED FOR UNKNOWN INDICATION
     Dosage: UNKNOWN, SINGLE
     Route: 030
     Dates: start: 20150326, end: 20150326

REACTIONS (1)
  - Expired product administered [Recovered/Resolved]

NARRATIVE: CASE EVENT DATE: 20150326
